FAERS Safety Report 10070256 (Version 1)
Quarter: 2014Q2

REPORT INFORMATION
  Report Type: Spontaneous
  Country: US (occurrence: US)
  Receive Date: 20140410
  Receipt Date: 20140410
  Transmission Date: 20141212
  Serious: Yes (Other)
  Sender: FDA-Public Use
  Company Number: US-BRISTOL-MYERS SQUIBB COMPANY-20608295

PATIENT
  Age: 14 Year
  Sex: Male

DRUGS (1)
  1. ABILIFY [Suspect]

REACTIONS (3)
  - Pituitary tumour [Unknown]
  - Tri-iodothyronine increased [Recovered/Resolved]
  - Thyroxine increased [Recovered/Resolved]
